FAERS Safety Report 9066226 (Version 2)
Quarter: 2013Q1

REPORT INFORMATION
  Report Type: Spontaneous
  Country: US (occurrence: US)
  Receive Date: 20130214
  Receipt Date: 20130308
  Transmission Date: 20140127
  Serious: No
  Sender: FDA-Public Use
  Company Number: US-TEVA-385822USA

PATIENT
  Age: 23 None
  Sex: Female
  Weight: 56.3 kg

DRUGS (2)
  1. PLAN B ONE-STEP [Suspect]
     Indication: POST COITAL CONTRACEPTION
     Dosage: 1.5 MILLIGRAM DAILY;
     Route: 048
     Dates: start: 20130209, end: 20130209
  2. SEASONIQUE [Concomitant]
     Indication: CONTRACEPTION

REACTIONS (1)
  - Metrorrhagia [Recovered/Resolved]
